FAERS Safety Report 20575816 (Version 2)
Quarter: 2022Q1

REPORT INFORMATION
  Report Type: Report from Study
  Country: EG (occurrence: EG)
  Receive Date: 20220310
  Receipt Date: 20220324
  Transmission Date: 20220423
  Serious: Yes (Life-Threatening, Hospitalization, Other)
  Sender: FDA-Public Use
  Company Number: EG-NOVARTISPH-NVSC2022EG038602

PATIENT
  Age: 54 Year
  Sex: Female

DRUGS (3)
  1. TASIGNA [Suspect]
     Active Substance: NILOTINIB
     Indication: Chronic myeloid leukaemia
     Dosage: 4 DOSAGE FORM, QD (FEBRUARY OR MARCH 2021)
     Route: 048
     Dates: start: 2021
  2. TASIGNA [Suspect]
     Active Substance: NILOTINIB
     Dosage: 2 DOSAGE FORM, QD (2 MONTHS AGO)
     Route: 048
     Dates: start: 2021
  3. TASIGNA [Suspect]
     Active Substance: NILOTINIB
     Dosage: 3 DOSAGE FORM, QD (2 CAPS IN THE MORNING AND 1 CAP AT NIGHT)
     Route: 048
     Dates: start: 20220303

REACTIONS (16)
  - Anal ulcer [Not Recovered/Not Resolved]
  - Haemorrhoids [Recovered/Resolved with Sequelae]
  - Back pain [Not Recovered/Not Resolved]
  - Swelling face [Recovered/Resolved]
  - Incorrect dose administered [Unknown]
  - Anal inflammation [Not Recovered/Not Resolved]
  - Inflammation [Recovered/Resolved with Sequelae]
  - Eating disorder [Recovered/Resolved]
  - Haemorrhoids [Recovered/Resolved with Sequelae]
  - Constipation [Recovering/Resolving]
  - Platelet count increased [Unknown]
  - Dyspnoea [Not Recovered/Not Resolved]
  - Decreased appetite [Recovered/Resolved]
  - Weight decreased [Recovered/Resolved]
  - Vomiting [Recovered/Resolved]
  - Fatigue [Not Recovered/Not Resolved]

NARRATIVE: CASE EVENT DATE: 20210201
